FAERS Safety Report 4516989-6 (Version None)
Quarter: 2004Q4

REPORT INFORMATION
  Report Type: 
  Country: None (occurrence: None)
  Receive Date: 20041130
  Receipt Date: 20041116
  Transmission Date: 20050328
  Serious: Yes (Other)
  Sender: FDA-Public Use
  Company Number: A-CH2004-07822

PATIENT
  Age: 75 Year
  Sex: Female

DRUGS (12)
  1. TRACLEER [Suspect]
     Indication: PULMONARY HYPERTENSION
     Dosage: 62.5 MG, BID, ORAL; 125 MG, BID, ORAL
     Route: 048
     Dates: start: 20040323, end: 20040510
  2. TRACLEER [Suspect]
     Indication: PULMONARY HYPERTENSION
     Dosage: 62.5 MG, BID, ORAL; 125 MG, BID, ORAL
     Route: 048
     Dates: start: 20040511, end: 20040816
  3. BRONCHIPRET TABLETS (PRIMULA RHIZOME, THYME EXTRACT) [Concomitant]
  4. SORTIS ^GOEDECKE^ (ATOVARSTATIN CALCIUM) [Concomitant]
  5. ISOKET (ISOSRBIDE DINITRATE) [Concomitant]
  6. CO-DIOVAN (VALSARTAN, HYDROCHLOROTHIAZIDE) [Concomitant]
  7. NORVASC [Concomitant]
  8. UNAT (TORASEMIDE) [Concomitant]
  9. TROMCARDIN (ASPARTATE POTASSIUM, MAGNESIUM ASPARTATE) [Concomitant]
  10. FENISTIL (DIMETINDENE MALEATE) [Concomitant]
  11. DOLOVISANO M (MEPHENESIN) [Concomitant]
  12. HERBAL PREPARATION [Concomitant]

REACTIONS (4)
  - ARTHRALGIA [None]
  - CONDITION AGGRAVATED [None]
  - DRUG INEFFECTIVE [None]
  - OSTEOARTHRITIS [None]
